FAERS Safety Report 4617931-X (Version None)
Quarter: 2005Q1

REPORT INFORMATION
  Report Type: 
  Country: None (occurrence: None)
  Receive Date: 20050322
  Receipt Date: 20050308
  Transmission Date: 20050727
  Serious: Yes (Hospitalization, Other)
  Sender: FDA-Public Use
  Company Number: USA-2003-0012156

PATIENT
  Age: 42 Year
  Sex: Male

DRUGS (15)
  1. OXYCONTIN [Suspect]
     Indication: PAIN
     Dosage: 40 MG, BID,
     Dates: end: 20020301
  2. MS CONTIN [Concomitant]
  3. OXYCODONE HCL [Concomitant]
  4. MS CONTIN [Concomitant]
  5. MORPHINE SULFATE [Concomitant]
  6. XANAFLAX [Concomitant]
  7. FLEXERIL (CYCLOBENAZAPRINE HYDROCHLORIDE) [Concomitant]
  8. TYLENOL (CAPLET) [Concomitant]
  9. WELLBUTRIN (AMFEBUTAMONE HYDOCHLORIDE) [Concomitant]
  10. ALBUTEROL [Concomitant]
  11. ATROVENT (IRPRATOPIUM BROMIDE) [Concomitant]
  12. PRILOSEC [Concomitant]
  13. TRAZODONE HCL [Concomitant]
  14. AMOXIL [Concomitant]
  15. ZOLOFT [Concomitant]

REACTIONS (36)
  - ABDOMINAL PAIN [None]
  - ANXIETY [None]
  - ARTHRALGIA [None]
  - ASTHMA [None]
  - CHEST PAIN [None]
  - CIRCULATORY COLLAPSE [None]
  - CONSTIPATION [None]
  - DEPRESSION [None]
  - DIARRHOEA [None]
  - DRUG DEPENDENCE [None]
  - DRUG WITHDRAWAL SYNDROME [None]
  - DYSPNOEA [None]
  - EAR INFECTION [None]
  - FALL [None]
  - FATIGUE [None]
  - GAIT DISTURBANCE [None]
  - HAEMATOCHEZIA [None]
  - HYPERHIDROSIS [None]
  - INSOMNIA [None]
  - IRRITABLE BOWEL SYNDROME [None]
  - JOINT SPRAIN [None]
  - LIMB INJURY [None]
  - LOCAL SWELLING [None]
  - LOSS OF CONSCIOUSNESS [None]
  - MENTAL STATUS CHANGES [None]
  - MOVEMENT DISORDER [None]
  - MUSCLE SPASMS [None]
  - NERVOUSNESS [None]
  - OEDEMA PERIPHERAL [None]
  - PAIN [None]
  - PAIN IN EXTREMITY [None]
  - PHARYNGITIS [None]
  - SLEEP DISORDER [None]
  - SYNCOPE [None]
  - TENDERNESS [None]
  - VERTIGO [None]
